FAERS Safety Report 10725219 (Version 1)
Quarter: 2015Q1

REPORT INFORMATION
  Report Type: Spontaneous
  Country: CN (occurrence: CN)
  Receive Date: 20150120
  Receipt Date: 20150120
  Transmission Date: 20150721
  Serious: Yes (Hospitalization, Other)
  Sender: FDA-Public Use
  Company Number: CN-JNJFOC-20150103611

PATIENT
  Age: 7 Month
  Sex: Male
  Weight: 8.9 kg

DRUGS (9)
  1. INFANTS TYLENOL [Suspect]
     Active Substance: ACETAMINOPHEN
     Indication: PYREXIA
     Route: 048
     Dates: start: 20140811, end: 20140816
  2. SHUANG HUANG LIAN [Suspect]
     Active Substance: HERBALS
     Indication: PHARYNGITIS
     Route: 048
     Dates: start: 20140811, end: 20140812
  3. HERBAL NOS [Suspect]
     Active Substance: HERBALS
     Indication: PHARYNGITIS
     Route: 048
     Dates: start: 20140811, end: 20140813
  4. HERBAL NOS [Suspect]
     Active Substance: HERBALS
     Indication: HERPES VIRUS INFECTION
     Route: 048
     Dates: start: 20140811, end: 20140813
  5. TRADITIONAL CHINESE MEDICATION [Suspect]
     Active Substance: UNSPECIFIED INGREDIENT
     Indication: HERPES VIRUS INFECTION
     Route: 048
     Dates: start: 20140811, end: 20140813
  6. TRADITIONAL CHINESE MEDICATION [Suspect]
     Active Substance: UNSPECIFIED INGREDIENT
     Indication: PHARYNGITIS
     Route: 048
     Dates: start: 20140811, end: 20140813
  7. INFANTS TYLENOL [Suspect]
     Active Substance: ACETAMINOPHEN
     Indication: RHINORRHOEA
     Route: 048
     Dates: start: 20140811, end: 20140816
  8. SHUANG HUANG LIAN [Suspect]
     Active Substance: HERBALS
     Indication: HERPES VIRUS INFECTION
     Route: 048
     Dates: start: 20140811, end: 20140812
  9. INFANTS TYLENOL [Suspect]
     Active Substance: ACETAMINOPHEN
     Indication: NASOPHARYNGITIS
     Route: 048
     Dates: start: 20140811, end: 20140816

REACTIONS (2)
  - Hepatic enzyme increased [Recovering/Resolving]
  - Drug ineffective [Unknown]

NARRATIVE: CASE EVENT DATE: 20140813
